FAERS Safety Report 10622976 (Version 1)
Quarter: 2014Q4

REPORT INFORMATION
  Report Type: Report from Study
  Country: IL (occurrence: IL)
  Receive Date: 20141203
  Receipt Date: 20141203
  Transmission Date: 20150529
  Serious: Yes (Hospitalization)
  Sender: FDA-Public Use
  Company Number: DE-ASTRAZENECA-2014SE92168

PATIENT
  Age: 79 Year
  Sex: Male

DRUGS (8)
  1. OMEPRAZOLE MAGNESIUM. [Suspect]
     Active Substance: OMEPRAZOLE MAGNESIUM
     Route: 048
  2. METOPROLOL [Concomitant]
     Active Substance: METOPROLOL
  3. SULFONYLUREA [Concomitant]
     Active Substance: UNSPECIFIED INGREDIENT
  4. METHOTREXATE [Interacting]
     Active Substance: METHOTREXATE
     Indication: POLYMYALGIA RHEUMATICA
  5. FUROSEMIDE. [Concomitant]
     Active Substance: FUROSEMIDE
  6. METFORMIN [Concomitant]
     Active Substance: METFORMIN HYDROCHLORIDE
  7. NIFEDIPINE. [Concomitant]
     Active Substance: NIFEDIPINE
  8. PREDNISONE. [Concomitant]
     Active Substance: PREDNISONE

REACTIONS (3)
  - Toxicity to various agents [Unknown]
  - Pneumonitis [Recovered/Resolved]
  - Drug interaction [Unknown]
